FAERS Safety Report 9282662 (Version 1)
Quarter: 2013Q2

REPORT INFORMATION
  Report Type: Report from Study
  Country: NL (occurrence: NL)
  Receive Date: 20130510
  Receipt Date: 20130510
  Transmission Date: 20140414
  Serious: Yes (Other)
  Sender: FDA-Public Use
  Company Number: PHHY2013NL045188

PATIENT
  Sex: Female

DRUGS (3)
  1. ACLASTA [Suspect]
     Indication: OSTEOPOROSIS
     Dosage: 5 MG,  (ONCE EVERY 364 DAYS)
     Route: 042
     Dates: start: 20090107
  2. ACLASTA [Suspect]
     Dosage: 5 MG,  (ONCE EVERY 364 DAYS)
     Route: 042
     Dates: start: 20110218
  3. ACLASTA [Suspect]
     Dosage: 5 MG,  (ONCE EVERY 364 DAYS)
     Route: 042
     Dates: start: 20120227

REACTIONS (1)
  - Neoplasm malignant [Unknown]
